FAERS Safety Report 7618296-1 (Version None)
Quarter: 2011Q3

REPORT INFORMATION
  Report Type: 
  Country: None (occurrence: None)
  Receive Date: 20110718
  Receipt Date: 20110706
  Transmission Date: 20111222
  Serious: Yes (Death, Hospitalization)
  Sender: FDA-Public Use
  Company Number: AR-ROCHE-778945

PATIENT
  Sex: Male

DRUGS (3)
  1. MYCOPHENOLATE MOFETIL [Suspect]
     Route: 065
     Dates: start: 20060220, end: 20110107
  2. BELATACEPT [Suspect]
     Dosage: DRUG WITHDRAWN
     Route: 042
     Dates: start: 20060220
  3. MEPREDNISONE [Suspect]
     Route: 065
     Dates: start: 20060220, end: 20101218

REACTIONS (2)
  - HEAD INJURY [None]
  - SEPSIS [None]
